FAERS Safety Report 8297467-8 (Version None)
Quarter: 2012Q2

REPORT INFORMATION
  Report Type: 
  Country: None (occurrence: None)
  Receive Date: 20120419
  Receipt Date: 20120410
  Transmission Date: 20120825
  Serious: Yes (Life-Threatening, Hospitalization)
  Sender: FDA-Public Use
  Company Number: US-JNJFOC-20120404743

PATIENT
  Sex: Male
  Weight: 95.71 kg

DRUGS (5)
  1. COUMADIN [Suspect]
     Indication: THROMBOSIS
     Route: 048
  2. REMICADE [Suspect]
     Indication: PSORIASIS
     Route: 042
  3. UNKNOWN MEDICATION [Concomitant]
     Indication: BLOOD PRESSURE
     Route: 065
  4. REMICADE [Suspect]
     Indication: PSORIATIC ARTHROPATHY
     Route: 042
  5. METHOTREXATE SODIUM [Concomitant]
     Indication: ARTHRITIS
     Route: 065

REACTIONS (5)
  - DECUBITUS ULCER [None]
  - PSORIASIS [None]
  - PYREXIA [None]
  - PULMONARY THROMBOSIS [None]
  - THROMBOSIS [None]
